FAERS Safety Report 9692610 (Version 1)
Quarter: 2013Q4

REPORT INFORMATION
  Report Type: Report from Study
  Country: FR (occurrence: FR)
  Receive Date: 20131118
  Receipt Date: 20131118
  Transmission Date: 20140711
  Serious: Yes (Other)
  Sender: FDA-Public Use
  Company Number: PHHY2013FR130832

PATIENT
  Age: 28 Year
  Sex: Female

DRUGS (1)
  1. EXTAVIA [Suspect]
     Dosage: UNK UKN, UNK

REACTIONS (4)
  - Multiple sclerosis relapse [Unknown]
  - Myopia [Unknown]
  - Astigmatism [Unknown]
  - Injection site pain [Unknown]
